FAERS Safety Report 7798121-9 (Version None)
Quarter: 2011Q4

REPORT INFORMATION
  Report Type: 
  Country: None (occurrence: None)
  Receive Date: 20111005
  Receipt Date: 20111003
  Transmission Date: 20120403
  Serious: Yes (Hospitalization)
  Sender: FDA-Public Use
  Company Number: JP-B.I. PHARMACEUTICALS,INC./RIDGEFIELD-2011-BP-23455NB

PATIENT
  Age: 76 Year
  Sex: Male
  Weight: 62.4 kg

DRUGS (7)
  1. PRADAXA [Suspect]
     Indication: ATRIAL FIBRILLATION
     Dosage: 220 MG
     Route: 048
     Dates: start: 20110818, end: 20110912
  2. ETICALM [Concomitant]
     Dosage: 1 MG
     Route: 065
  3. GABAPENTIN [Concomitant]
     Dosage: 800 MG
     Route: 048
  4. FAMOTIDINE [Concomitant]
     Dosage: 40 MG
     Route: 048
  5. HEAVY MAGNESIUM OXIDE [Concomitant]
     Dosage: 1 G
     Route: 065
  6. MECOBALAMIN [Concomitant]
     Dosage: 1.5 MG
     Route: 048
  7. LYRICA [Concomitant]
     Dosage: 50 MG
     Route: 048

REACTIONS (4)
  - HAEMATOCHEZIA [None]
  - HAEMOGLOBIN DECREASED [None]
  - ANAEMIA [None]
  - DYSPNOEA [None]
